FAERS Safety Report 4591392-1 (Version None)
Quarter: 2005Q1

REPORT INFORMATION
  Report Type: 
  Country: None (occurrence: None)
  Receive Date: 20050225
  Receipt Date: 20050216
  Transmission Date: 20050727
  Serious: Yes (Hospitalization)
  Sender: FDA-Public Use
  Company Number: PHHO2005US02839

PATIENT
  Age: 71 Year
  Sex: Male
  Weight: 77 kg

DRUGS (11)
  1. ZOLEDRONATE [Suspect]
     Indication: METASTASES TO BONE
     Dosage: 4 MG, UNK
     Route: 042
     Dates: start: 20050207
  2. WELLBUTRIN [Concomitant]
     Indication: DEPRESSION
     Dosage: 150 MG, BID
     Route: 048
     Dates: start: 20041112
  3. BENADRYL [Concomitant]
     Indication: RASH
     Dosage: 25 MG, PRN
     Route: 048
     Dates: start: 20050117
  4. METAMUCIL-2 [Concomitant]
     Indication: CONSTIPATION
     Dosage: 2-3 TSPNS PRN
     Dates: start: 20050117
  5. DECADRON [Concomitant]
  6. CIPROFLOXACIN [Concomitant]
  7. DEXEDRINE [Concomitant]
  8. TAXOTERE [Concomitant]
     Indication: NON-SMALL CELL LUNG CANCER
     Dosage: 149 MG, UNK
  9. CARBOPLATIN [Concomitant]
     Indication: NON-SMALL CELL LUNG CANCER
     Dosage: 660 MG, UNK
  10. VITAMIN D [Concomitant]
  11. CALCIUM GLUCONATE [Concomitant]

REACTIONS (9)
  - ASTHENIA [None]
  - DEHYDRATION [None]
  - DIZZINESS [None]
  - FEELING ABNORMAL [None]
  - FLUID INTAKE REDUCED [None]
  - LOSS OF CONTROL OF LEGS [None]
  - ORTHOSTATIC HYPOTENSION [None]
  - SYNCOPE [None]
  - UPPER RESPIRATORY TRACT INFECTION [None]
